FAERS Safety Report 14496796 (Version 1)
Quarter: 2018Q1

REPORT INFORMATION
  Report Type: Spontaneous
  Country: US (occurrence: US)
  Receive Date: 20180207
  Receipt Date: 20180207
  Transmission Date: 20180509
  Serious: No
  Sender: FDA-Public Use
  Company Number: US-PFIZER INC-2018048409

PATIENT
  Age: 55 Year
  Sex: Female

DRUGS (1)
  1. SUTENT [Suspect]
     Active Substance: SUNITINIB MALATE
     Indication: MALIGNANT NEOPLASM OF THYMUS
     Dosage: 50 MG, DAILY
     Route: 048
     Dates: start: 20171229, end: 20180125

REACTIONS (5)
  - Dry skin [Unknown]
  - Appetite disorder [Unknown]
  - Nausea [Unknown]
  - Product use in unapproved indication [Unknown]
  - Stomatitis [Unknown]

NARRATIVE: CASE EVENT DATE: 20171229
